FAERS Safety Report 25311394 (Version 1)
Quarter: 2025Q2

REPORT INFORMATION
  Report Type: Report from Study
  Country: US (occurrence: US)
  Receive Date: 20250514
  Receipt Date: 20250514
  Transmission Date: 20250716
  Serious: Yes (Death, Hospitalization)
  Sender: RECORDATI
  Company Number: US-RECORDATI RARE DISEASES-2025002435

PATIENT
  Age: 6 Year
  Sex: Male
  Weight: 15.497 kg

DRUGS (12)
  1. CYSTADROPS [Suspect]
     Active Substance: CYSTEAMINE HYDROCHLORIDE
     Indication: Cystinosis
     Dosage: 2 GTT DROPS, QID
     Route: 047
  2. CYSTADROPS [Suspect]
     Active Substance: CYSTEAMINE HYDROCHLORIDE
     Dosage: 2 GTT DROPS, QID
     Route: 047
  3. CYPROHEPTADINE HYDROCHLORIDE [Concomitant]
     Active Substance: CYPROHEPTADINE HYDROCHLORIDE
     Indication: Product used for unknown indication
     Dosage: 2 MG/5 ML, QD, (SYRUP)
     Route: 048
     Dates: start: 20221104
  4. Indomethacin extended release [Concomitant]
     Indication: Product used for unknown indication
     Dosage: 75 MG, QD, (CAPSULE)
     Route: 048
     Dates: start: 20221104
  5. LANSOPRAZOLE [Concomitant]
     Active Substance: LANSOPRAZOLE
     Indication: Product used for unknown indication
     Dosage: 15 MG, QD, (TABLET)
     Route: 048
     Dates: start: 20221104
  6. LEVOTHYROXINE SODIUM [Concomitant]
     Active Substance: LEVOTHYROXINE SODIUM
     Indication: Product used for unknown indication
     Dosage: 25 MICROGRAM, QD, (TABLET)
     Route: 048
     Dates: start: 20221104
  7. MAGNESIUM OXIDE [Concomitant]
     Active Substance: MAGNESIUM OXIDE
     Indication: Product used for unknown indication
     Dosage: 500 MG, QD, (TABLET)
     Route: 048
     Dates: start: 20221104
  8. NORDITROPIN [Concomitant]
     Active Substance: SOMATROPIN
     Indication: Product used for unknown indication
     Dosage: 30 MG/3 ML, QD
     Route: 058
     Dates: start: 20221104
  9. K PHOS NEUTRAL [Concomitant]
     Active Substance: POTASSIUM PHOSPHATE, MONOBASIC\SODIUM PHOSPHATE, DIBASIC, ANHYDROUS\SODIUM PHOSPHATE, MONOBASIC, MON
     Indication: Product used for unknown indication
     Dosage: 280-160-250 MG, QD, (PACKET)
     Route: 048
     Dates: start: 20221104
  10. POTASSIUM CHLORIDE [Concomitant]
     Active Substance: POTASSIUM CHLORIDE
     Indication: Product used for unknown indication
     Dosage: 20 (UNITS NOT SPECIFIED), QD (SOLUTION)
     Route: 048
     Dates: start: 20221104
  11. CITRIC ACID\POTASSIUM CITRATE [Concomitant]
     Active Substance: CITRIC ACID MONOHYDRATE\POTASSIUM CITRATE
     Indication: Product used for unknown indication
     Dosage: 1100-334 (UNITS NOT SPECIFIED), QD
     Route: 048
     Dates: start: 20221104
  12. PROCYSBI [Concomitant]
     Active Substance: CYSTEAMINE BITARTRATE
     Indication: Product used for unknown indication
     Dosage: 75 MG, QD, (PACKET)
     Route: 048
     Dates: start: 20221104

REACTIONS (4)
  - Sepsis [Fatal]
  - Cardiac failure [Fatal]
  - Gastrointestinal inflammation [Unknown]
  - Intestinal stenosis [Unknown]

NARRATIVE: CASE EVENT DATE: 20250303
